FAERS Safety Report 22060324 (Version 2)
Quarter: 2023Q1

REPORT INFORMATION
  Report Type: Report from Study
  Country: US (occurrence: None)
  Receive Date: 20230303
  Receipt Date: 20230314
  Transmission Date: 20230417
  Serious: Yes (Death, Hospitalization, Other)
  Sender: FDA-Public Use
  Company Number: 2023A051509

PATIENT
  Age: 39 Year
  Sex: Female

DRUGS (9)
  1. QUETIAPINE [Interacting]
     Active Substance: QUETIAPINE
     Route: 048
  2. BUPRENORPHINE [Interacting]
     Active Substance: BUPRENORPHINE
  3. GABAPENTIN [Interacting]
     Active Substance: GABAPENTIN
  4. PROMETHAZINE [Interacting]
     Active Substance: PROMETHAZINE HYDROCHLORIDE
  5. ALPRAZOLAM [Interacting]
     Active Substance: ALPRAZOLAM
  6. DIPHENHYDRAMINE [Interacting]
     Active Substance: DIPHENHYDRAMINE
  7. PREGABALIN [Interacting]
     Active Substance: PREGABALIN
  8. TRAZODONE [Interacting]
     Active Substance: TRAZODONE HYDROCHLORIDE
  9. NALOXONE [Interacting]
     Active Substance: NALOXONE

REACTIONS (9)
  - Accidental overdose [Fatal]
  - Toxicity to various agents [Fatal]
  - Drug interaction [Fatal]
  - Pulmonary oedema [Fatal]
  - Pneumonia [Fatal]
  - Pulmonary congestion [Fatal]
  - Cardiac arrest [Unknown]
  - Loss of consciousness [Unknown]
  - Drug abuse [Fatal]
